FAERS Safety Report 10196738 (Version 1)
Quarter: 2014Q2

REPORT INFORMATION
  Report Type: Spontaneous
  Country: FR (occurrence: FR)
  Receive Date: 20140527
  Receipt Date: 20140527
  Transmission Date: 20141212
  Serious: Yes (Other)
  Sender: FDA-Public Use
  Company Number: FR-ASTRAZENECA-2014SE35781

PATIENT
  Sex: Female

DRUGS (1)
  1. ROPIVACAINE [Suspect]
     Indication: POSTOPERATIVE ANALGESIA
     Dosage: TAP BLOCK
     Route: 053

REACTIONS (2)
  - Toxicity to various agents [Unknown]
  - Convulsion [Unknown]
